FAERS Safety Report 5463291-4 (Version None)
Quarter: 2007Q3

REPORT INFORMATION
  Report Type: 
  Country: None (occurrence: None)
  Receive Date: 20070920
  Receipt Date: 20070913
  Transmission Date: 20080115
  Serious: Yes (Hospitalization, Other)
  Sender: FDA-Public Use
  Company Number: B0487825A

PATIENT
  Sex: Male
  Weight: 110 kg

DRUGS (10)
  1. ACETAMINOPHEN W/ CODEINE [Suspect]
     Indication: DRUG USE FOR UNKNOWN INDICATION
     Route: 065
  2. ACETAMINOPHEN [Suspect]
     Indication: DRUG USE FOR UNKNOWN INDICATION
     Route: 065
  3. REMICADE [Suspect]
     Indication: DRUG USE FOR UNKNOWN INDICATION
     Route: 042
  4. ASACOL [Concomitant]
  5. AZATHIOPRINE [Concomitant]
  6. CIPROFLOXACIN [Concomitant]
  7. FLUOXETINE [Concomitant]
  8. HYOSCINE HBR HYT [Concomitant]
  9. LANSOPRAZOLE [Concomitant]
  10. PARAFFIN [Concomitant]

REACTIONS (3)
  - EUPHORIC MOOD [None]
  - GAMMA-GLUTAMYLTRANSFERASE INCREASED [None]
  - MULTIPLE DRUG OVERDOSE [None]
